FAERS Safety Report 6350057-6 (Version None)
Quarter: 2009Q3

REPORT INFORMATION
  Report Type: 
  Country: None (occurrence: None)
  Receive Date: 20090911
  Receipt Date: 20090622
  Transmission Date: 20100115
  Serious: No
  Sender: FDA-Public Use
  Company Number: US-ABBOTT-06P-163-0352040-00

PATIENT
  Sex: Female
  Weight: 91 kg

DRUGS (5)
  1. HUMIRA [Suspect]
     Indication: RHEUMATOID ARTHRITIS
     Route: 058
     Dates: start: 20040101, end: 20061114
  2. HUMIRA [Suspect]
     Route: 058
     Dates: start: 20061114
  3. COUMADIN [Concomitant]
     Indication: THROMBOSIS
     Route: 048
  4. CYMBALTA [Concomitant]
     Indication: PAIN MANAGEMENT
     Route: 048
  5. VICODIN [Concomitant]
     Indication: PAIN

REACTIONS (4)
  - DRUG INEFFECTIVE [None]
  - INCORRECT DOSE ADMINISTERED [None]
  - INJECTION SITE IRRITATION [None]
  - RHEUMATOID ARTHRITIS [None]
